FAERS Safety Report 7384889-2 (Version None)
Quarter: 2011Q1

REPORT INFORMATION
  Report Type: 
  Country: None (occurrence: None)
  Receive Date: 20110330
  Receipt Date: 20110303
  Transmission Date: 20110831
  Serious: No
  Sender: FDA-Public Use
  Company Number: US-B.I. PHARMACEUTICALS,INC./RIDGEFIELD-2011-BP-06275BP

PATIENT
  Age: 85 Year
  Sex: Female

DRUGS (6)
  1. PRADAXA [Suspect]
     Dosage: 150 MG
     Route: 048
     Dates: start: 20110225
  2. PROPRANOLOL [Concomitant]
     Indication: HYPERTENSION
     Dosage: 160 MG
  3. PRADAXA [Suspect]
     Indication: ATRIAL FIBRILLATION
     Dosage: 300 MG
     Route: 048
     Dates: start: 20110101, end: 20110225
  4. ZOLOFT [Concomitant]
     Indication: DEPRESSION
     Dosage: 50 MG
  5. LEVOTHYROXINE SODIUM [Concomitant]
     Indication: HYPOTHYROIDISM
     Dosage: 88 MCG
  6. XANAX [Concomitant]
     Indication: SLEEP DISORDER
     Dosage: 25 MCG

REACTIONS (5)
  - HAEMATOMA [None]
  - DIZZINESS [None]
  - FATIGUE [None]
  - PRURITUS [None]
  - LISTLESS [None]
